FAERS Safety Report 6064659-8 (Version None)
Quarter: 2009Q1

REPORT INFORMATION
  Report Type: 
  Country: None (occurrence: None)
  Receive Date: 20090204
  Receipt Date: 20080319
  Transmission Date: 20090719
  Serious: No
  Sender: FDA-Public Use
  Company Number: A0716436A

PATIENT
  Sex: Female

DRUGS (1)
  1. ARIXTRA [Suspect]
     Indication: DEEP VEIN THROMBOSIS
     Route: 058

REACTIONS (1)
  - INTERNATIONAL NORMALISED RATIO DECREASED [None]
